FAERS Safety Report 8835982 (Version 3)
Quarter: 2013Q2

REPORT INFORMATION
  Report Type: Spontaneous
  Country: US (occurrence: US)
  Receive Date: 20121011
  Receipt Date: 20130517
  Transmission Date: 20140414
  Serious: Yes (Hospitalization)
  Sender: FDA-Public Use
  Company Number: US-BAYER-2012-103443

PATIENT
  Age: 27 Year
  Sex: Female
  Weight: 84.81 kg

DRUGS (5)
  1. YASMIN [Suspect]
     Dosage: UNK
     Dates: start: 2004, end: 2008
  2. VITAMIN B12 (CYANOCOBALAMIN AND ANALOGUES) [Concomitant]
     Dosage: 100 MCG QD
     Route: 048
  3. LEVOTHYROXINE [Concomitant]
     Dosage: 100 MCG QD
     Route: 048
  4. PROTONIX [Concomitant]
     Dosage: 40 MG, QD
     Route: 048
  5. ADVAIR [Concomitant]
     Dosage: 1 PUFF(S), BID

REACTIONS (8)
  - Pulmonary embolism [None]
  - Pain [None]
  - Emotional distress [None]
  - Injury [None]
  - Anhedonia [None]
  - Anxiety [None]
  - General physical health deterioration [None]
  - Pain [None]
